FAERS Safety Report 7586066-9 (Version None)
Quarter: 2011Q2

REPORT INFORMATION
  Report Type: 
  Country: None (occurrence: None)
  Receive Date: 20110603
  Receipt Date: 20110504
  Transmission Date: 20111010
  Serious: No
  Sender: FDA-Public Use
  Company Number: 2011SP020268

PATIENT
  Sex: Female

DRUGS (5)
  1. SAPHRIS [Suspect]
     Indication: BIPOLAR DISORDER
     Dosage: 10 MG;QD;SL
     Route: 060
  2. PAXIL [Concomitant]
  3. DEPAKOTE [Concomitant]
  4. TRAZODONE HCL [Concomitant]
  5. CLONIDIPINE [Concomitant]

REACTIONS (2)
  - OEDEMA PERIPHERAL [None]
  - INAPPROPRIATE SCHEDULE OF DRUG ADMINISTRATION [None]
